FAERS Safety Report 19162524 (Version 2)
Quarter: 2021Q4

REPORT INFORMATION
  Report Type: Report from Study
  Country: DE (occurrence: DE)
  Receive Date: 20210421
  Receipt Date: 20211019
  Transmission Date: 20220303
  Serious: Yes (Other)
  Sender: FDA-Public Use
  Company Number: DE-AUROBINDO-AUR-APL-2021-015818

PATIENT
  Age: 67 Year

DRUGS (6)
  1. AMIODARONE [Suspect]
     Active Substance: AMIODARONE
     Indication: Ventricular arrhythmia
     Dosage: UNK
     Route: 065
  2. AMIODARONE [Suspect]
     Active Substance: AMIODARONE
     Indication: Ventricular fibrillation
  3. AMIODARONE [Suspect]
     Active Substance: AMIODARONE
     Indication: Ventricular tachycardia
  4. SOTALOL [Suspect]
     Active Substance: SOTALOL
     Indication: Ventricular arrhythmia
     Dosage: UNK
     Route: 065
  5. SOTALOL [Suspect]
     Active Substance: SOTALOL
     Indication: Ventricular tachycardia
  6. SOTALOL [Suspect]
     Active Substance: SOTALOL
     Indication: Ventricular fibrillation

REACTIONS (1)
  - Treatment failure [Unknown]
